FAERS Safety Report 12528075 (Version 3)
Quarter: 2016Q4

REPORT INFORMATION
  Report Type: Spontaneous
  Country: JP (occurrence: JP)
  Receive Date: 20160705
  Receipt Date: 20161007
  Transmission Date: 20170207
  Serious: Yes (Death)
  Sender: FDA-Public Use
  Company Number: JP-BRACCO-010248

PATIENT
  Age: 74 Year
  Sex: Female
  Weight: 42 kg

DRUGS (3)
  1. GEMZAR [Interacting]
     Active Substance: GEMCITABINE HYDROCHLORIDE
     Indication: CHEMOTHERAPY
     Route: 041
  2. IOPAMIRON [Suspect]
     Active Substance: IOPAMIDOL
     Indication: COMPUTERISED TOMOGRAM
     Route: 042
     Dates: start: 20160519, end: 20160519
  3. KYTRIL [Interacting]
     Active Substance: GRANISETRON HYDROCHLORIDE
     Indication: CHEMOTHERAPY
     Route: 041

REACTIONS (4)
  - Anaphylactic shock [Fatal]
  - Sneezing [Recovered/Resolved]
  - Drug interaction [Unknown]
  - Feeling hot [Recovered/Resolved]

NARRATIVE: CASE EVENT DATE: 20160519
